FAERS Safety Report 5524416-5 (Version None)
Quarter: 2007Q4

REPORT INFORMATION
  Report Type: 
  Country: None (occurrence: None)
  Receive Date: 20071121
  Receipt Date: 20071114
  Transmission Date: 20080405
  Serious: Yes (Other)
  Sender: FDA-Public Use
  Company Number: US-PFIZER INC-2007096847

PATIENT
  Sex: Male
  Weight: 90.7 kg

DRUGS (3)
  1. ZYRTEC [Suspect]
     Indication: ANAPHYLACTIC SHOCK
     Dates: start: 20070618, end: 20071001
  2. ZYRTEC [Suspect]
     Indication: PRURITUS
  3. CLINDAMYCIN HCL [Suspect]
     Indication: PROPHYLAXIS
     Dates: start: 20070606, end: 20070101

REACTIONS (7)
  - ANAPHYLACTIC SHOCK [None]
  - COGNITIVE DISORDER [None]
  - CONFUSIONAL STATE [None]
  - DISTURBANCE IN ATTENTION [None]
  - FEELING ABNORMAL [None]
  - ILL-DEFINED DISORDER [None]
  - PRURITUS [None]
